FAERS Safety Report 15518671 (Version 1)
Quarter: 2018Q4

REPORT INFORMATION
  Report Type: Report from Study
  Country: US (occurrence: US)
  Receive Date: 20181017
  Receipt Date: 20181017
  Transmission Date: 20190205
  Serious: Yes (Hospitalization, Other)
  Sender: FDA-Public Use
  Company Number: US-SHIRE-US201839565

PATIENT
  Sex: Female

DRUGS (2)
  1. HUMAN NORMAL IMMUNOGLOBULIN; LIQUID [Suspect]
     Active Substance: HUMAN IMMUNOGLOBULIN G
     Indication: IMMUNODEFICIENCY COMMON VARIABLE
     Dosage: 25 G, EVERY 4 WK
     Route: 042
  2. BENADRYL [Concomitant]
     Active Substance: DIPHENHYDRAMINE HYDROCHLORIDE
     Indication: PRODUCT USED FOR UNKNOWN INDICATION

REACTIONS (9)
  - Cerebral venous thrombosis [Unknown]
  - Abdominal pain upper [Unknown]
  - Seizure [Unknown]
  - Incorrect drug administration rate [Unknown]
  - Urticaria [Unknown]
  - Brain neoplasm [Unknown]
  - Poor venous access [Unknown]
  - Nervous system disorder [Unknown]
  - Fatigue [Recovering/Resolving]
